FAERS Safety Report 8304087-5 (Version None)
Quarter: 2012Q2

REPORT INFORMATION
  Report Type: 
  Country: None (occurrence: None)
  Receive Date: 20120418
  Receipt Date: 20111213
  Transmission Date: 20120825
  Serious: No
  Sender: FDA-Public Use
  Company Number: AEUSA201100357

PATIENT
  Age: 45 Year
  Sex: Male
  Weight: 91.6266 kg

DRUGS (7)
  1. TOPROL-XL [Concomitant]
  2. IBUPROFEN [Concomitant]
  3. PROLASTIN-C [Suspect]
     Indication: ALPHA-1 ANTI-TRYPSIN DEFICIENCY
     Dosage: 10 GM, QOW, IV
     Route: 042
     Dates: start: 20100101
  4. CARDIZEM [Concomitant]
  5. ALTACE [Concomitant]
  6. ZANTAC [Concomitant]
  7. CLARINEX [Concomitant]

REACTIONS (1)
  - DRUG SCREEN FALSE POSITIVE [None]
